FAERS Safety Report 4654532-1 (Version None)
Quarter: 2005Q2

REPORT INFORMATION
  Report Type: 
  Country: None (occurrence: None)
  Receive Date: 20050506
  Receipt Date: 20050426
  Transmission Date: 20051028
  Serious: Yes (Other)
  Sender: FDA-Public Use
  Company Number: US-JNJFOC-20031200137

PATIENT
  Sex: Female
  Weight: 57.15 kg

DRUGS (7)
  1. TOPAMAX [Suspect]
     Indication: PARTIAL SEIZURES
     Route: 049
  2. TOPAMAX [Suspect]
     Route: 049
  3. CYANOCOBALAMIN [Concomitant]
     Route: 065
  4. VITAMINS [Concomitant]
     Route: 065
  5. DARVOCET [Concomitant]
     Route: 065
  6. DARVOCET [Concomitant]
     Indication: PAIN
     Dosage: PRN FOR PAIN
     Route: 065
  7. ATIVAN [Concomitant]

REACTIONS (12)
  - AMNESIA [None]
  - CATARACT [None]
  - CONSTIPATION [None]
  - DEAFNESS [None]
  - INSOMNIA [None]
  - LENTICULAR OPACITIES [None]
  - NERVOUSNESS [None]
  - PARAESTHESIA [None]
  - POLYNEUROPATHY [None]
  - RASH [None]
  - VISION BLURRED [None]
  - WEIGHT DECREASED [None]
